FAERS Safety Report 4295167-2 (Version None)
Quarter: 2004Q1

REPORT INFORMATION
  Report Type: 
  Country: None (occurrence: None)
  Receive Date: 20040216
  Receipt Date: 20040202
  Transmission Date: 20041129
  Serious: Yes (Hospitalization)
  Sender: FDA-Public Use
  Company Number: PHBS2004ES01567

PATIENT
  Age: 52 Year
  Sex: Male

DRUGS (1)
  1. TRILEPTAL [Suspect]
     Indication: EPILEPSY
     Dosage: 150 MG, UNK
     Route: 048
     Dates: start: 20040113, end: 20040130

REACTIONS (3)
  - ATRIOVENTRICULAR BLOCK [None]
  - EXTRASYSTOLES [None]
  - MALAISE [None]
